FAERS Safety Report 12808957 (Version 5)
Quarter: 2020Q4

REPORT INFORMATION
  Report Type: Spontaneous
  Country: US (occurrence: US)
  Receive Date: 20161004
  Receipt Date: 20201214
  Transmission Date: 20210113
  Serious: Yes (Hospitalization)
  Sender: FDA-Public Use
  Company Number: US-PFIZER INC-2016460595

PATIENT
  Age: 53 Year
  Sex: Male
  Weight: 99.79 kg

DRUGS (4)
  1. LYRICA [Suspect]
     Active Substance: PREGABALIN
     Indication: TYPE 2 DIABETES MELLITUS
     Dosage: 600 MG, DAILY (1 BY MOUTH IN THE AM, 1 IN MIDDAY, AND 2 BY MOUTH AT NIGHT)
     Route: 048
  2. LYRICA [Suspect]
     Active Substance: PREGABALIN
     Indication: NEUROPATHY PERIPHERAL
     Dosage: 600 MG, DAILY (150 MG IN THE MORNING AND 150 MG IN EARLY AFTERNOON AND 300 MG AT NIGHT)
     Route: 048
     Dates: start: 201312
  3. LYRICA [Suspect]
     Active Substance: PREGABALIN
     Indication: DIABETIC NEUROPATHY
     Dosage: 600 MG, DAILY, (1 BY MOUTH IN THE AM, 1 IN MIDDAY, AND 2 BY MOUTH AT NIGHT)
     Route: 048
     Dates: start: 20201013
  4. NOVOLOG MIX 70/30 [Concomitant]
     Active Substance: INSULIN ASPART
     Indication: DIABETES MELLITUS
     Dosage: UNK, 2X/DAY (35 UNITS BEFORE HE GOT TO WORK AND WHEN HE GET HOME HE TAKES 15 UNITS)

REACTIONS (2)
  - Pain in extremity [Unknown]
  - Bacterial infection [Unknown]
